APPROVED DRUG PRODUCT: GLYBURIDE
Active Ingredient: GLYBURIDE
Strength: 2.5MG
Dosage Form/Route: TABLET;ORAL
Application: A206079 | Product #002 | TE Code: AB2
Applicant: IMPAX LABORATORIES INC
Approved: Sep 30, 2015 | RLD: No | RS: No | Type: RX